FAERS Safety Report 25227973 (Version 1)
Quarter: 2025Q2

REPORT INFORMATION
  Report Type: Spontaneous
  Country: US (occurrence: US)
  Receive Date: 20250423
  Receipt Date: 20250423
  Transmission Date: 20250717
  Serious: No
  Sender: AMGEN
  Company Number: US-AMGEN-USASP2025078757

PATIENT
  Sex: Male

DRUGS (6)
  1. OTEZLA [Suspect]
     Active Substance: APREMILAST
     Indication: Psoriasis
     Dosage: 30 MILLIGRAM, BID
     Route: 048
  2. ASPIRIN [Concomitant]
     Active Substance: ASPIRIN
  3. CELEBREX [Concomitant]
     Active Substance: CELECOXIB
  4. TADALAFIL [Concomitant]
     Active Substance: TADALAFIL
  5. TIZANIDINE [Concomitant]
     Active Substance: TIZANIDINE
  6. TRAZODONE [Concomitant]
     Active Substance: TRAZODONE HYDROCHLORIDE

REACTIONS (2)
  - Pain [Not Recovered/Not Resolved]
  - Therapy interrupted [Unknown]
